FAERS Safety Report 15131054 (Version 2)
Quarter: 2018Q3

REPORT INFORMATION
  Report Type: Spontaneous
  Country: IT (occurrence: US)
  Receive Date: 20180711
  Receipt Date: 20180918
  Transmission Date: 20181010
  Serious: Yes (Death, Other)
  Sender: FDA-Public Use
  Company Number: IT-MYLANLABS-2018M1049224

PATIENT
  Age: 64 Year
  Sex: Male

DRUGS (2)
  1. INFLUENZA VACCINE INACT [Suspect]
     Active Substance: INFLUENZA VIRUS VACCINE
     Indication: IMMUNISATION
     Dosage: UNK
     Route: 065
  2. WARFARIN [Suspect]
     Active Substance: WARFARIN
     Indication: PRODUCT USED FOR UNKNOWN INDICATION
     Dosage: UNK
     Route: 065

REACTIONS (8)
  - Drug interaction [Fatal]
  - Rectal haemorrhage [Fatal]
  - Death [Fatal]
  - Haemorrhage intracranial [Fatal]
  - Cerebral infarction [Fatal]
  - Computerised tomogram abnormal [Fatal]
  - Unresponsive to stimuli [Fatal]
  - International normalised ratio increased [Fatal]
